FAERS Safety Report 24229076 (Version 1)
Quarter: 2024Q3

REPORT INFORMATION
  Report Type: Spontaneous
  Country: US (occurrence: None)
  Receive Date: 20240819
  Receipt Date: 20240819
  Transmission Date: 20241017
  Serious: Yes (Hospitalization)
  Sender: Public
  Company Number: None

PATIENT
  Age: 68 Year
  Sex: Male
  Weight: 82.8 kg

DRUGS (4)
  1. RAMELTEON [Suspect]
     Active Substance: RAMELTEON
  2. METOPROLOL [Concomitant]
     Active Substance: METOPROLOL
  3. APIXABAN [Concomitant]
     Active Substance: APIXABAN
  4. ARED2/preservision [Concomitant]

REACTIONS (2)
  - Swollen tongue [None]
  - Atrial fibrillation [None]

NARRATIVE: CASE EVENT DATE: 20240814
